FAERS Safety Report 20388531 (Version 1)
Quarter: 2022Q1

REPORT INFORMATION
  Report Type: Spontaneous
  Country: US (occurrence: US)
  Receive Date: 20220128
  Receipt Date: 20220128
  Transmission Date: 20220423
  Serious: No
  Sender: FDA-Public Use
  Company Number: US-ALLERGAN-2140110US

PATIENT

DRUGS (1)
  1. BOTOX [Suspect]
     Active Substance: ONABOTULINUMTOXINA
     Indication: Maternal exposure during breast feeding
     Dosage: 155.45 UNITS, SINGLE
     Route: 063
     Dates: start: 20211007, end: 20211007

REACTIONS (1)
  - Maternal exposure during breast feeding [Unknown]
